FAERS Safety Report 15591201 (Version 1)
Quarter: 2018Q4

REPORT INFORMATION
  Report Type: Report from Study
  Country: BE (occurrence: BE)
  Receive Date: 20181106
  Receipt Date: 20181106
  Transmission Date: 20190205
  Serious: Yes (Hospitalization)
  Sender: FDA-Public Use
  Company Number: BE-BAYER-2018-205234

PATIENT
  Sex: Female
  Weight: 62 kg

DRUGS (2)
  1. COPANLISIB. [Suspect]
     Active Substance: COPANLISIB
     Indication: NEOPLASM
     Dosage: 45 MG, UNK
     Route: 042
     Dates: start: 20181023, end: 20181023
  2. ROGARATINIB [Suspect]
     Active Substance: ROGARATINIB
     Indication: NEOPLASM
     Dosage: 400 MG, UNK
     Route: 048
     Dates: start: 20181025

REACTIONS (2)
  - Rash generalised [Not Recovered/Not Resolved]
  - Pneumonitis [Not Recovered/Not Resolved]

NARRATIVE: CASE EVENT DATE: 20181104
